FAERS Safety Report 15614407 (Version 1)
Quarter: 2018Q4

REPORT INFORMATION
  Report Type: Spontaneous
  Country: GB (occurrence: GB)
  Receive Date: 20181113
  Receipt Date: 20181113
  Transmission Date: 20190205
  Serious: Yes (Other)
  Sender: FDA-Public Use
  Company Number: PHHY2018GB152709

PATIENT
  Sex: Male

DRUGS (4)
  1. LDK378 [Suspect]
     Active Substance: CERITINIB
     Indication: PRODUCT USED FOR UNKNOWN INDICATION
     Dosage: 450 MG, UNK
     Route: 065
     Dates: start: 20180705
  2. LDK378 [Suspect]
     Active Substance: CERITINIB
     Dosage: 450 MG, UNK
     Route: 065
  3. LDK378 [Suspect]
     Active Substance: CERITINIB
     Dosage: 300 MG, UNK
     Route: 065
  4. LDK378 [Suspect]
     Active Substance: CERITINIB
     Dosage: 300 MG, UNK
     Route: 065

REACTIONS (2)
  - Neutrophil count abnormal [Unknown]
  - Malaise [Unknown]
